FAERS Safety Report 5232490-9 (Version None)
Quarter: 2007Q1

REPORT INFORMATION
  Report Type: 
  Country: None (occurrence: None)
  Receive Date: 20070206
  Receipt Date: 20070206
  Transmission Date: 20070707
  Serious: Yes (Life-Threatening, Hospitalization)
  Sender: FDA-Public Use
  Company Number: None

PATIENT
  Sex: Female
  Weight: 50 kg

DRUGS (3)
  1. BUPROPION HCL [Suspect]
     Indication: DEPRESSION
     Dosage: BUPROPIONX1 DAILY PO
     Route: 048
  2. FLUOXETINE HCL [Suspect]
     Indication: DEPRESSION
     Dosage: FLUOXETINE DAILY PO
     Route: 048
  3. LSA [Concomitant]

REACTIONS (8)
  - BRAIN DAMAGE [None]
  - DRUG ABUSER [None]
  - DRUG INEFFECTIVE [None]
  - HYPOTENSION [None]
  - INCORRECT DOSE ADMINISTERED [None]
  - PARALYSIS [None]
  - STATUS EPILEPTICUS [None]
  - SUICIDE ATTEMPT [None]
